FAERS Safety Report 4783327-3 (Version None)
Quarter: 2005Q3

REPORT INFORMATION
  Report Type: 
  Country: None (occurrence: None)
  Receive Date: 20050914
  Receipt Date: 20040720
  Transmission Date: 20060218
  Serious: Yes (Other)
  Sender: FDA-Public Use
  Company Number: 163-20785-04050179

PATIENT
  Age: 49 Year
  Sex: Male

DRUGS (3)
  1. THALOMID [Suspect]
     Indication: MULTIPLE MYELOMA
     Dosage: 200 MG, QHS, ORAL
     Route: 048
     Dates: start: 20031212
  2. DECADRON [Concomitant]
  3. ZOLEDRONIC ACID (ZOLEDRONIC ACID) [Concomitant]

REACTIONS (2)
  - ALOPECIA [None]
  - DEAFNESS [None]
